FAERS Safety Report 6160110-8 (Version None)
Quarter: 2009Q2

REPORT INFORMATION
  Report Type: 
  Country: None (occurrence: None)
  Receive Date: 20090415
  Receipt Date: 20090330
  Transmission Date: 20091009
  Serious: Yes (Other)
  Sender: FDA-Public Use
  Company Number: 000#8#2008-00207

PATIENT
  Age: 49 Year
  Sex: 0

DRUGS (1)
  1. GLYCERYL TRINITRATE (GLYCERYL TRINITRATE) [Suspect]
     Indication: PROPHYLAXIS
     Dosage: 10 MG, TWO 10-MG PATCHES APPLIED TRANSDERMAL
     Route: 062
     Dates: start: 20070101, end: 20070101

REACTIONS (7)
  - ALTERED STATE OF CONSCIOUSNESS [None]
  - ATAXIA [None]
  - BRAIN OEDEMA [None]
  - MOUNTAIN SICKNESS ACUTE [None]
  - NEUROLOGICAL SYMPTOM [None]
  - OFF LABEL USE [None]
  - VOMITING [None]
